FAERS Safety Report 24805988 (Version 2)
Quarter: 2025Q1

REPORT INFORMATION
  Report Type: Spontaneous
  Country: US (occurrence: US)
  Receive Date: 20250103
  Receipt Date: 20250109
  Transmission Date: 20250409
  Serious: Yes (Other)
  Sender: PFIZER
  Company Number: US-PFIZER INC-PV202400157732

PATIENT
  Age: 80 Year
  Sex: Female
  Weight: 101.31 kg

DRUGS (7)
  1. IBRANCE [Suspect]
     Active Substance: PALBOCICLIB
     Indication: Invasive ductal breast carcinoma
     Route: 048
     Dates: start: 20231206
  2. IBRANCE [Suspect]
     Active Substance: PALBOCICLIB
     Indication: Breast cancer female
  3. IBRANCE [Suspect]
     Active Substance: PALBOCICLIB
     Indication: Metastases to bone
  4. ANASTROZOLE [Suspect]
     Active Substance: ANASTROZOLE
     Indication: Invasive ductal breast carcinoma
     Dates: start: 20231122
  5. ANASTROZOLE [Suspect]
     Active Substance: ANASTROZOLE
     Indication: Breast cancer female
  6. ANASTROZOLE [Suspect]
     Active Substance: ANASTROZOLE
     Indication: Metastases to bone
  7. ZOMETA [Concomitant]
     Active Substance: ZOLEDRONIC ACID

REACTIONS (23)
  - Cytopenia [Unknown]
  - Arrhythmia [Unknown]
  - Breast mass [Unknown]
  - Peripheral sensorimotor neuropathy [Unknown]
  - Hyperlipidaemia [Unknown]
  - Lymphocyte count increased [Unknown]
  - Eosinophil count increased [Not Recovered/Not Resolved]
  - Blood albumin decreased [Unknown]
  - Blood cholesterol increased [Unknown]
  - Blood triglycerides increased [Unknown]
  - Low density lipoprotein increased [Unknown]
  - Non-high-density lipoprotein cholesterol increased [Unknown]
  - Blood 1,25-dihydroxycholecalciferol increased [Not Recovered/Not Resolved]
  - Haematocrit decreased [Unknown]
  - Aspartate aminotransferase decreased [Unknown]
  - Neutrophil count decreased [Unknown]
  - Myalgia [Unknown]
  - Arthralgia [Unknown]
  - Blood pressure abnormal [Unknown]
  - Oedema peripheral [Unknown]
  - Bone density decreased [Unknown]
  - Infection [Unknown]
  - Abdominal discomfort [Unknown]

NARRATIVE: CASE EVENT DATE: 20240226
